FAERS Safety Report 8208858-5 (Version None)
Quarter: 2012Q1

REPORT INFORMATION
  Report Type: 
  Country: None (occurrence: None)
  Receive Date: 20120314
  Receipt Date: 20120309
  Transmission Date: 20120608
  Serious: Yes (Hospitalization)
  Sender: FDA-Public Use
  Company Number: IE-MERCK-1203GBR00035

PATIENT
  Age: 77 Year
  Sex: Female

DRUGS (7)
  1. LATANOPROST [Concomitant]
     Route: 065
  2. LEVOTHYROXINE SODIUM [Concomitant]
     Indication: HYPOTHYROIDISM
     Route: 065
  3. CALCIUM CARBONATE AND CHOLECALCIFEROL [Concomitant]
     Route: 065
  4. FOSAMAX [Suspect]
     Indication: OSTEOPOROSIS
     Route: 048
     Dates: end: 20120222
  5. BUDESONIDE AND FORMOTEROL FUMARATE [Concomitant]
     Route: 065
  6. FLUTICASONE PROPIONATE AND SALMETEROL XINAFOATE [Concomitant]
     Route: 065
  7. ESOMEPRAZOLE [Concomitant]
     Route: 065

REACTIONS (3)
  - OESOPHAGEAL IRRITATION [None]
  - MUCOSAL DISCOLOURATION [None]
  - CHEST PAIN [None]
